FAERS Safety Report 4502205-8 (Version None)
Quarter: 2004Q4

REPORT INFORMATION
  Report Type: 
  Country: None (occurrence: None)
  Receive Date: 20041109
  Receipt Date: 20041027
  Transmission Date: 20050328
  Serious: Yes (Hospitalization)
  Sender: FDA-Public Use
  Company Number: FR_041005126

PATIENT
  Age: 14 Year
  Sex: Male
  Weight: 61 kg

DRUGS (1)
  1. UMATROPE (SOMATROPIN) [Suspect]
     Dosage: 14.5 MG/7 WEEK
     Dates: start: 20020208

REACTIONS (1)
  - OSTEOCHONDROSIS [None]
